FAERS Safety Report 25894456 (Version 1)
Quarter: 2025Q4

REPORT INFORMATION
  Report Type: Spontaneous
  Country: EU (occurrence: EU)
  Receive Date: 20251008
  Receipt Date: 20251008
  Transmission Date: 20260117
  Serious: Yes (Hospitalization)
  Sender: AUROBINDO
  Company Number: EU-URPL-DML-MLP.4401.2.1335.2022

PATIENT
  Age: 65 Year
  Sex: Female

DRUGS (4)
  1. SERTRALINE [Suspect]
     Active Substance: SERTRALINE HYDROCHLORIDE
     Indication: Product used for unknown indication
     Dosage: UNK UNK, ONCE A DAY (ONGOING THERAPY; DOSAGE - ONCE A DAY IN THE MORNING)
     Route: 048
     Dates: start: 201904
  2. GLYCOPYRRONIUM\INDACATEROL [Concomitant]
     Active Substance: GLYCOPYRRONIUM\INDACATEROL
     Indication: Product used for unknown indication
     Dosage: UNK (THE DRUG HAS BEEN USED FOR SEVERAL YEARS)
     Route: 065
  3. Dynid [Concomitant]
     Indication: Product used for unknown indication
     Dosage: UNK (THE DRUG HAS BEEN USED FOR A VERY LONG TIME)
     Route: 048
  4. Ketrel [Concomitant]
     Indication: Product used for unknown indication
     Dosage: UNK
     Route: 065
     Dates: start: 2019

REACTIONS (1)
  - Ureteral neoplasm [Unknown]

NARRATIVE: CASE EVENT DATE: 20211222
